FAERS Safety Report 18257842 (Version 3)
Quarter: 2020Q4

REPORT INFORMATION
  Report Type: Spontaneous
  Country: US (occurrence: US)
  Receive Date: 20200911
  Receipt Date: 20201211
  Transmission Date: 20210113
  Serious: Yes (Disabling)
  Sender: FDA-Public Use
  Company Number: US-ASTRAZENECA-2020SF11780

PATIENT
  Age: 763 Month
  Sex: Female
  Weight: 88.9 kg

DRUGS (26)
  1. ROSUVASTATIN. [Suspect]
     Active Substance: ROSUVASTATIN
     Route: 048
  2. VITMIN D3 [Concomitant]
  3. IPRATROPIUM-ALBUTEROL [Concomitant]
     Active Substance: ALBUTEROL\IPRATROPIUM
     Dosage: 3 ML QID
     Route: 055
  4. BREO ELLIPTA [Concomitant]
     Active Substance: FLUTICASONE FUROATE\VILANTEROL TRIFENATATE
  5. TYLENOL [Concomitant]
     Active Substance: ACETAMINOPHEN
  6. FOSAMAX [Concomitant]
     Active Substance: ALENDRONATE SODIUM
     Dosage: 70 MG, 1 TAB ONCE A WEEK
     Route: 048
  7. TRIAMCINOLONE TOPICAL [Concomitant]
     Route: 061
  8. CALCIUM-VITAMIN D [Concomitant]
     Active Substance: CALCIUM\VITAMIN D
     Route: 048
  9. OMEPRAZOLE. [Concomitant]
     Active Substance: OMEPRAZOLE
     Route: 048
  10. HYPERTONIC SALINE NEBULES [Concomitant]
     Dosage: 3.0% UNKNOWN
  11. EPINEPRINE [Concomitant]
     Active Substance: EPINEPHRINE
  12. LASIX [Concomitant]
     Active Substance: FUROSEMIDE
     Route: 048
  13. CYCLOBENZAPRINE. [Concomitant]
     Active Substance: CYCLOBENZAPRINE
     Route: 048
  14. METFORMIN [Concomitant]
     Active Substance: METFORMIN HYDROCHLORIDE
     Route: 048
  15. BRIO INHALER [Concomitant]
     Route: 055
  16. AZELASTINE. [Concomitant]
     Active Substance: AZELASTINE HYDROCHLORIDE
  17. LOSARTAN-HCL [Concomitant]
     Route: 048
  18. DOXYCYCLINE. [Concomitant]
     Active Substance: DOXYCYCLINE
  19. FASENRA [Suspect]
     Active Substance: BENRALIZUMAB
     Indication: EOSINOPHIL COUNT
     Dosage: 30MG/ML EVERY FOUR WEEKS
     Route: 058
     Dates: start: 20200805, end: 20201204
  20. ROSUVASTATIN. [Suspect]
     Active Substance: ROSUVASTATIN
     Dosage: HALF TABLET EVERY OTHER DAY
     Route: 048
  21. PREDNISONE. [Concomitant]
     Active Substance: PREDNISONE
     Indication: WHEEZING
     Dosage: MONTHLY
     Route: 065
     Dates: end: 202007
  22. LORATADINE. [Concomitant]
     Active Substance: LORATADINE
     Route: 048
  23. MONTELUKAST [Concomitant]
     Active Substance: MONTELUKAST SODIUM
     Route: 048
  24. FLUTICASONE. [Concomitant]
     Active Substance: FLUTICASONE
     Route: 055
  25. PEPCID [Concomitant]
     Active Substance: FAMOTIDINE
     Route: 048
  26. ALBUTEROL NEBULIZER [Concomitant]
     Active Substance: ALBUTEROL
     Indication: ASTHMA
     Dosage: 90 MCG 2 PUFFS AS NEEDED

REACTIONS (9)
  - Myalgia [Not Recovered/Not Resolved]
  - Headache [Recovered/Resolved]
  - Sputum discoloured [Recovering/Resolving]
  - Chills [Recovered/Resolved]
  - Insomnia [Unknown]
  - Wheezing [Recovered/Resolved]
  - Fibromyalgia [Unknown]
  - Arthralgia [Not Recovered/Not Resolved]
  - Pain [Recovered/Resolved]

NARRATIVE: CASE EVENT DATE: 202008
